FAERS Safety Report 6050616-4 (Version None)
Quarter: 2009Q1

REPORT INFORMATION
  Report Type: 
  Country: None (occurrence: None)
  Receive Date: 20090121
  Receipt Date: 20090121
  Transmission Date: 20090719
  Serious: Yes (Hospitalization)
  Sender: FDA-Public Use
  Company Number: None

PATIENT
  Age: 75 Year
  Sex: Female
  Weight: 78 kg

DRUGS (18)
  1. LENALIDOMIDE 10MG CELGENE [Suspect]
     Indication: MULTIPLE MYELOMA
     Dosage: 10MG 21 D IN 28 D CYCLE PO
     Route: 048
  2. ACETAMINOPHEN [Concomitant]
  3. MAALOX [Concomitant]
  4. ASCORBIC ACID [Concomitant]
  5. CALCIUM/VITAMIN D [Concomitant]
  6. ESCITALOPRAM [Concomitant]
  7. GABAPENTIN [Concomitant]
  8. HEPARIN [Concomitant]
  9. HYDROCORTISONE [Concomitant]
  10. LOPERAMIDE HCL [Concomitant]
  11. LORAZEPAM [Concomitant]
  12. CENTRUM MULTIVITAMIN [Concomitant]
  13. OMEPRAZOLE [Concomitant]
  14. OXYCONDONE [Concomitant]
  15. POTASSIUM CHLORIDE [Concomitant]
  16. SIMVASTATIN [Concomitant]
  17. TEMAZEPAM [Concomitant]
  18. VITAMIN E [Concomitant]

REACTIONS (3)
  - DEEP VEIN THROMBOSIS [None]
  - PULMONARY EMBOLISM [None]
  - TREATMENT NONCOMPLIANCE [None]
